FAERS Safety Report 5455861-4 (Version None)
Quarter: 2007Q3

REPORT INFORMATION
  Report Type: 
  Country: None (occurrence: None)
  Receive Date: 20070918
  Receipt Date: 20070228
  Transmission Date: 20080115
  Serious: Yes (Disabling, Other)
  Sender: FDA-Public Use
  Company Number: US-ASTRAZENECA-2006UW23006

PATIENT
  Sex: Female
  Weight: 122.7 kg

DRUGS (3)
  1. SEROQUEL [Suspect]
     Indication: DEPRESSION
     Route: 048
     Dates: end: 20030101
  2. ABILIFY [Concomitant]
     Dates: start: 20060101, end: 20070101
  3. RISPERDAL [Concomitant]
     Dates: start: 20060101, end: 20070101

REACTIONS (2)
  - DIABETES MELLITUS [None]
  - DIABETIC COMA [None]
